FAERS Safety Report 17217262 (Version 2)
Quarter: 2020Q4

REPORT INFORMATION
  Report Type: Other
  Country: US (occurrence: US)
  Receive Date: 20191231
  Receipt Date: 20201202
  Transmission Date: 20210113
  Serious: Yes (Other)
  Sender: FDA-Public Use
  Company Number: US-VISTA PHARMACEUTICALS INC.-2078357

PATIENT
  Age: 52 Year
  Sex: Male

DRUGS (1)
  1. SULFAMETHOXAZOLE AND TRIMETHOPRIM [Suspect]
     Active Substance: SULFAMETHOXAZOLE\TRIMETHOPRIM
     Indication: CEREBRAL TOXOPLASMOSIS
     Route: 065

REACTIONS (1)
  - Pancytopenia [Unknown]
